FAERS Safety Report 6033760-7 (Version None)
Quarter: 2009Q1

REPORT INFORMATION
  Report Type: 
  Country: None (occurrence: None)
  Receive Date: 20090111
  Receipt Date: 20081211
  Transmission Date: 20090719
  Serious: No
  Sender: FDA-Public Use
  Company Number: US-BAYER-200840657NA

PATIENT
  Sex: Male

DRUGS (1)
  1. CIPRO [Suspect]
     Indication: UNEVALUABLE EVENT
     Route: 065
     Dates: start: 20030101

REACTIONS (8)
  - ANXIETY [None]
  - HERPES VIRUS INFECTION [None]
  - MEMORY IMPAIRMENT [None]
  - NERVE INJURY [None]
  - PAIN [None]
  - TENDON DISORDER [None]
  - UNEVALUABLE EVENT [None]
  - URTICARIA [None]
